FAERS Safety Report 14762912 (Version 6)
Quarter: 2018Q4

REPORT INFORMATION
  Report Type: Spontaneous
  Country: US (occurrence: US)
  Receive Date: 20180416
  Receipt Date: 20181015
  Transmission Date: 20190204
  Serious: Yes (Other)
  Sender: FDA-Public Use
  Company Number: US-AMGEN-USASP2018050448

PATIENT
  Age: 95 Year
  Sex: Female
  Weight: 53.61 kg

DRUGS (6)
  1. PROCRIT [Suspect]
     Active Substance: ERYTHROPOIETIN
     Dosage: 60000 UNIT, UNK (OCCASIONAL)
     Route: 030
     Dates: start: 201706, end: 20180409
  2. PROCRIT [Suspect]
     Active Substance: ERYTHROPOIETIN
     Dosage: 40000 UNIT, QWK
     Route: 058
     Dates: start: 20180103, end: 20180402
  3. PROCRIT [Suspect]
     Active Substance: ERYTHROPOIETIN
     Indication: NEPHROGENIC ANAEMIA
     Dosage: 40000 UNIT, QMO
     Route: 030
     Dates: start: 201506, end: 201801
  4. IRON [Concomitant]
     Active Substance: IRON
     Dosage: UNK
  5. FEXOFENADINE [Concomitant]
     Active Substance: FEXOFENADINE\FEXOFENADINE HYDROCHLORIDE
     Dosage: UNK
  6. PROCRIT [Suspect]
     Active Substance: ERYTHROPOIETIN
     Dosage: 40000 UNIT, QWK (MORE RECENTLY)
     Route: 030
     Dates: start: 201804, end: 20180409

REACTIONS (4)
  - Drug ineffective [Unknown]
  - Incorrect route of product administration [Unknown]
  - Aplasia pure red cell [Not Recovered/Not Resolved]
  - Intentional product misuse [Unknown]

NARRATIVE: CASE EVENT DATE: 201506
